FAERS Safety Report 17904705 (Version 1)
Quarter: 2020Q2

REPORT INFORMATION
  Report Type: Spontaneous
  Country: US (occurrence: US)
  Receive Date: 20200616
  Receipt Date: 20200616
  Transmission Date: 20200714
  Serious: Yes (Life-Threatening, Hospitalization)
  Sender: FDA-Public Use
  Company Number: None

PATIENT
  Age: 63 Year
  Sex: Female
  Weight: 87.75 kg

DRUGS (13)
  1. LEVOTHYROXIN 0.05MG [Concomitant]
  2. THYROID [Concomitant]
     Active Substance: LEVOTHYROXINE\LIOTHYRONINE
  3. CPAP [Concomitant]
     Active Substance: DEVICE
  4. OMEPRAZOLE 20MG [Concomitant]
     Active Substance: OMEPRAZOLE
  5. PHENTOIN SODIUM 100MG [Concomitant]
  6. NOLVADEX [Suspect]
     Active Substance: TAMOXIFEN CITRATE
     Indication: BREAST CANCER
     Dosage: ?          QUANTITY:2 TABLET(S);?
     Route: 048
     Dates: start: 20200301, end: 20200530
  7. CARVEDILOL. [Concomitant]
     Active Substance: CARVEDILOL
  8. LOSARTAN 100MG [Concomitant]
     Active Substance: LOSARTAN
  9. POTASSIUM 100MG [Concomitant]
  10. ELIQUIS 15MG [Concomitant]
  11. CALCIUM 40MG [Concomitant]
  12. CITALOPRAM [Concomitant]
     Active Substance: CITALOPRAM HYDROBROMIDE
  13. ATROVASTATIN [Concomitant]
     Active Substance: ATORVASTATIN CALCIUM

REACTIONS (3)
  - Pulmonary embolism [None]
  - Pneumonia [None]
  - Pleurisy [None]

NARRATIVE: CASE EVENT DATE: 20200530
